FAERS Safety Report 16275201 (Version 4)
Quarter: 2019Q4

REPORT INFORMATION
  Report Type: Report from Study
  Country: CO (occurrence: CO)
  Receive Date: 20190504
  Receipt Date: 20191110
  Transmission Date: 20200122
  Serious: Yes (Other)
  Sender: FDA-Public Use
  Company Number: PHHY2018CO056777

PATIENT
  Sex: Female
  Weight: 114 kg

DRUGS (3)
  1. SIGNIFOR [Suspect]
     Active Substance: PASIREOTIDE
     Indication: PITUITARY-DEPENDENT CUSHING^S SYNDROME
     Dosage: 1.2 MG, QD
     Route: 058
     Dates: start: 20180607
  2. SIGNIFOR [Suspect]
     Active Substance: PASIREOTIDE
     Dosage: 0.5 MG, Q12H
     Route: 058
  3. INSULIN [Concomitant]
     Active Substance: INSULIN NOS
     Indication: DIABETES MELLITUS
     Dosage: 50 MG, Q12H
     Route: 058

REACTIONS (18)
  - Malaise [Unknown]
  - Weight decreased [Unknown]
  - Fatigue [Unknown]
  - Colitis [Not Recovered/Not Resolved]
  - Eating disorder [Unknown]
  - Mood altered [Unknown]
  - Pain in extremity [Unknown]
  - Blood glucose increased [Unknown]
  - Depressed mood [Not Recovered/Not Resolved]
  - Tachycardia [Not Recovered/Not Resolved]
  - Overweight [Not Recovered/Not Resolved]
  - Diarrhoea [Unknown]
  - General physical health deterioration [Not Recovered/Not Resolved]
  - Swelling [Not Recovered/Not Resolved]
  - Inappropriate schedule of product administration [Unknown]
  - Renal pain [Unknown]
  - Blood glucose decreased [Unknown]
  - Abdominal distension [Unknown]
